FAERS Safety Report 6912435-3 (Version None)
Quarter: 2010Q3

REPORT INFORMATION
  Report Type: 
  Country: None (occurrence: None)
  Receive Date: 20100806
  Receipt Date: 20080530
  Transmission Date: 20110219
  Serious: No
  Sender: FDA-Public Use
  Company Number: US-PFIZER INC-2008046706

PATIENT
  Sex: Female
  Weight: 74.84 kg

DRUGS (3)
  1. PHENYTOIN [Suspect]
     Indication: PROPHYLAXIS
     Route: 048
     Dates: start: 20080101
  2. ANTIHYPERTENSIVES [Concomitant]
  3. METFORMIN HCL [Concomitant]
     Indication: DIABETES MELLITUS
     Route: 048

REACTIONS (1)
  - PRURITUS [None]
